FAERS Safety Report 14125452 (Version 2)
Quarter: 2017Q4

REPORT INFORMATION
  Report Type: Spontaneous
  Country: JP (occurrence: JP)
  Receive Date: 20171025
  Receipt Date: 20171027
  Transmission Date: 20180321
  Serious: Yes (Hospitalization)
  Sender: FDA-Public Use
  Company Number: JP-BAYER-2017-184970

PATIENT
  Age: 48 Year
  Sex: Female
  Weight: 50.3 kg

DRUGS (5)
  1. LEUPLIN [Concomitant]
     Active Substance: LEUPROLIDE ACETATE
     Dosage: UNK
     Route: 058
     Dates: start: 20151201, end: 201602
  2. LEUPRORELIN ACETATE [Concomitant]
     Active Substance: LEUPROLIDE ACETATE
     Dosage: UNK
     Route: 058
     Dates: start: 20130902, end: 201404
  3. DIENOGEST [Concomitant]
     Active Substance: DIENOGEST
     Dosage: UNK
     Route: 048
     Dates: start: 20140324, end: 20151201
  4. YAZ [Suspect]
     Active Substance: DROSPIRENONE\ETHINYL ESTRADIOL
     Indication: DYSMENORRHOEA
     Dosage: 1 DF, QD
     Route: 048
     Dates: start: 20170306, end: 20170903
  5. KEISHIBUKURYOUGAN [Concomitant]
     Dosage: 3PACKS,TID
     Dates: start: 201703

REACTIONS (5)
  - Vena cava thrombosis [Recovering/Resolving]
  - Pain in extremity [Recovering/Resolving]
  - Pulmonary venous thrombosis [Recovering/Resolving]
  - Peripheral swelling [Recovering/Resolving]
  - Gait disturbance [Recovering/Resolving]

NARRATIVE: CASE EVENT DATE: 20170904
